FAERS Safety Report 4404317-6 (Version None)
Quarter: 2004Q3

REPORT INFORMATION
  Report Type: 
  Country: None (occurrence: None)
  Receive Date: 20040719
  Receipt Date: 20040706
  Transmission Date: 20050211
  Serious: Yes (Other)
  Sender: FDA-Public Use
  Company Number: GB-JNJFOC-20040701223

PATIENT
  Age: 66 Year
  Sex: Female
  Weight: 65 kg

DRUGS (4)
  1. REMICADE [Suspect]
     Indication: RHEUMATOID ARTHRITIS
     Dosage: 20 MG/ML, INTRAVENOUS
     Route: 042
     Dates: start: 20030501
  2. METHOTREXATE [Concomitant]
  3. FOLIC ACID [Concomitant]
  4. MOTIVAL (MOTIVAL) [Concomitant]

REACTIONS (2)
  - AGGRESSION [None]
  - MOOD SWINGS [None]
